FAERS Safety Report 5592450-5 (Version None)
Quarter: 2008Q1

REPORT INFORMATION
  Report Type: 
  Country: None (occurrence: None)
  Receive Date: 20080111
  Receipt Date: 20080107
  Transmission Date: 20080703
  Serious: Yes (Hospitalization)
  Sender: FDA-Public Use
  Company Number: 2008-00051

PATIENT
  Age: 42 Year
  Sex: Male

DRUGS (1)
  1. VELCADE [Suspect]
     Indication: DRUG USE FOR UNKNOWN INDICATION
     Dosage: 1.00 MG/M2

REACTIONS (2)
  - HEPATIC FUNCTION ABNORMAL [None]
  - SKIN REACTION [None]
